FAERS Safety Report 8770635 (Version 1)
Quarter: 2012Q4

REPORT INFORMATION
  Report Type: 
  Country: RU (occurrence: RU)
  Receive Date: 20120906
  Receipt Date: 20120906
  Transmission Date: 20130627
  Serious: Yes (Hospitalization)
  Sender: FDA-Public Use
  Company Number: PHHO2011RU020116

PATIENT
  Age: 64 Year
  Sex: Male
  Weight: 89.7 kg

DRUGS (12)
  1. BLINDED ALISKIREN [Suspect]
     Indication: CARDIAC FAILURE
     Dosage: code not broken
     Route: 048
     Dates: start: 20111213
  2. BLINDED ENALAPRIL [Suspect]
     Indication: CARDIAC FAILURE
     Dosage: code not broken
     Route: 048
     Dates: start: 20111213
  3. BLINDED NO TREATMENT RECEIVED [Suspect]
     Indication: CARDIAC FAILURE
     Dosage: code not broken
     Route: 048
     Dates: start: 20111213
  4. ACETYLSALICYLIC ACID [Concomitant]
     Indication: ATRIAL FIBRILLATION
     Dosage: 100 mg, QD
     Route: 048
     Dates: start: 20120415
  5. SIMVASTATIN [Concomitant]
     Indication: ANGINA PECTORIS
     Dosage: 20 mg, QD
     Route: 048
     Dates: start: 20110415
  6. METOPROLOL [Concomitant]
     Indication: ANGINA PECTORIS
     Dosage: 12.5 mg, BID
     Route: 048
     Dates: start: 20100213, end: 20110415
  7. METOPROLOL [Concomitant]
     Indication: CARDIAC FAILURE CHRONIC
     Dosage: 12.5 mg, BID
     Route: 048
     Dates: start: 20110423, end: 20120530
  8. DIGOXIN [Concomitant]
     Indication: ATRIAL FIBRILLATION
     Dosage: 0.25 mg, QD
     Route: 048
     Dates: start: 20100213, end: 20111123
  9. DIGOXIN [Concomitant]
     Dosage: 0.25 mg, QD
     Route: 048
     Dates: start: 20110416, end: 20120530
  10. FUROSEMIDE [Concomitant]
     Indication: CARDIAC FAILURE CHRONIC
     Dosage: 40 mg, QD
     Route: 048
     Dates: start: 20001106, end: 20111123
  11. FUROSEMIDE [Concomitant]
     Dosage: 40 mg, QD
     Route: 048
     Dates: start: 20110427, end: 20111123
  12. HYDROCHLOROTHIAZIDE [Concomitant]
     Indication: CARDIAC FAILURE CHRONIC
     Dosage: 25 mg, QD
     Route: 048
     Dates: start: 20110415, end: 20111123

REACTIONS (1)
  - Disease progression [Recovered/Resolved]
